FAERS Safety Report 13463913 (Version 1)
Quarter: 2017Q2

REPORT INFORMATION
  Report Type: Spontaneous
  Country: US (occurrence: US)
  Receive Date: 20170420
  Receipt Date: 20170420
  Transmission Date: 20170830
  Serious: Yes (Other)
  Sender: FDA-Public Use
  Company Number: US-ROCHE-694384

PATIENT
  Age: 32 Year
  Sex: Female
  Weight: 52.2 kg

DRUGS (4)
  1. ORTHO TRI CYCLEN [Concomitant]
     Active Substance: ETHINYL ESTRADIOL\NORGESTIMATE
     Route: 065
  2. ACCUTANE [Suspect]
     Active Substance: ISOTRETINOIN
     Indication: ACNE
     Dosage: FREQUENCY: QD.
     Route: 065
  3. ACCUTANE [Suspect]
     Active Substance: ISOTRETINOIN
     Dosage: FREQUENCY: QD. DOSE INCREASED.
     Route: 065
  4. ACCUTANE [Suspect]
     Active Substance: ISOTRETINOIN
     Dosage: FREQUENCY: QD. DOSE INCREASED.
     Route: 065
     Dates: start: 20040401, end: 20040525

REACTIONS (8)
  - Depression [Unknown]
  - Arthralgia [Unknown]
  - Erythema [Unknown]
  - Dry skin [Unknown]
  - Colitis ulcerative [Unknown]
  - Anaemia [Unknown]
  - Inflammatory bowel disease [Unknown]
  - Lip dry [Unknown]

NARRATIVE: CASE EVENT DATE: 20040302
